FAERS Safety Report 6522327-X (Version None)
Quarter: 2009Q4

REPORT INFORMATION
  Report Type: 
  Country: None (occurrence: None)
  Receive Date: 20091230
  Receipt Date: 20091222
  Transmission Date: 20100525
  Serious: Yes (Hospitalization)
  Sender: FDA-Public Use
  Company Number: B0619439A

PATIENT
  Sex: Female

DRUGS (19)
  1. AUGMENTIN '125' [Suspect]
     Dosage: 1000MG THREE TIMES PER DAY
     Route: 048
     Dates: start: 20090801, end: 20091107
  2. ESIDRIX [Suspect]
     Indication: DRUG USE FOR UNKNOWN INDICATION
     Dosage: 25MG TWICE PER DAY
     Route: 048
     Dates: start: 20090801, end: 20091107
  3. CORTANCYL [Suspect]
     Route: 048
     Dates: start: 20090625, end: 20091107
  4. SINEMET [Suspect]
     Indication: PARKINSON'S DISEASE
     Dosage: 2UNIT THREE TIMES PER DAY
     Route: 048
     Dates: end: 20091107
  5. ALPRAZOLAM [Suspect]
     Indication: DRUG USE FOR UNKNOWN INDICATION
     Dosage: .625MG PER DAY
     Route: 048
     Dates: end: 20091107
  6. NEBIVOLOL [Suspect]
     Indication: DRUG USE FOR UNKNOWN INDICATION
     Dosage: 5MG PER DAY
     Route: 048
     Dates: end: 20091107
  7. OMEPRAZOLE [Suspect]
     Indication: DRUG USE FOR UNKNOWN INDICATION
     Dosage: 40MG PER DAY
     Route: 048
     Dates: end: 20090801
  8. AMLODIPINE [Suspect]
     Indication: DRUG USE FOR UNKNOWN INDICATION
     Dosage: 5MG PER DAY
     Route: 048
     Dates: end: 20091107
  9. CAPTOPRIL [Suspect]
     Indication: DRUG USE FOR UNKNOWN INDICATION
     Dosage: 50MG TWICE PER DAY
     Route: 048
     Dates: start: 20090801, end: 20091107
  10. NORSET [Suspect]
     Indication: DRUG USE FOR UNKNOWN INDICATION
     Dosage: 15MG PER DAY
     Route: 048
     Dates: end: 20091107
  11. MOTILIUM [Concomitant]
     Route: 065
     Dates: end: 20091107
  12. DOLIPRANE [Concomitant]
     Route: 065
     Dates: end: 20091107
  13. TARDYFERON B9 [Concomitant]
     Route: 065
     Dates: end: 20091107
  14. STILNOX [Concomitant]
     Route: 065
     Dates: end: 20091107
  15. DIFFU K [Concomitant]
     Route: 065
     Dates: end: 20091107
  16. CACIT D3 [Concomitant]
     Route: 065
     Dates: end: 20091107
  17. BONIVA [Concomitant]
     Route: 065
     Dates: end: 20091107
  18. CAPTOPRIL AND HYDROCHLOROTHIAZIDE [Concomitant]
     Dosage: 2UNIT PER DAY
     Route: 048
     Dates: end: 20091107
  19. FORLAX [Concomitant]
     Route: 065
     Dates: end: 20091107

REACTIONS (18)
  - ASTHENIA [None]
  - CHROMATURIA [None]
  - CONDITION AGGRAVATED [None]
  - CONFUSIONAL STATE [None]
  - CUSHINGOID [None]
  - DECREASED APPETITE [None]
  - DISORIENTATION [None]
  - FAECES DISCOLOURED [None]
  - GENERAL PHYSICAL HEALTH DETERIORATION [None]
  - HAEMATOMA [None]
  - HEPATIC PAIN [None]
  - HEPATITIS CHOLESTATIC [None]
  - HEPATOCELLULAR INJURY [None]
  - HEPATOMEGALY [None]
  - JAUNDICE [None]
  - OEDEMA PERIPHERAL [None]
  - PARKINSONISM [None]
  - PSYCHOMOTOR RETARDATION [None]
